APPROVED DRUG PRODUCT: TRIAMCINOLONE ACETONIDE
Active Ingredient: TRIAMCINOLONE ACETONIDE
Strength: 3MG/ML
Dosage Form/Route: INJECTABLE;INJECTION
Application: N019503 | Product #001
Applicant: PARNELL PHARMACEUTICALS INC
Approved: Oct 16, 1987 | RLD: No | RS: No | Type: DISCN